FAERS Safety Report 8653445 (Version 6)
Quarter: 2012Q4

REPORT INFORMATION
  Report Type: 
  Country: None (occurrence: JP)
  Receive Date: 20120706
  Receipt Date: 20120907
  Transmission Date: 20130627
  Serious: Yes (Other)
  Sender: FDA-Public Use
  Company Number: JP-SANTEN INC.-INC-12-000193

PATIENT
  Age: 82 Year
  Sex: Female

DRUGS (3)
  1. CRAVIT (LEVOFLOXACIN 0.5%) [Suspect]
     Indication: ACUTE CONJUNCTIVITIS
     Dosage: 8 GTT
     Route: 047
     Dates: end: 20110331
  2. HYALEIN [Suspect]
     Indication: KERATOCONJUNCTIVITIS
     Route: 047
     Dates: start: 2001, end: 20110331
  3. DIQUAFOSOL SODIUM [Suspect]
     Route: 047
     Dates: start: 201012, end: 20110325

REACTIONS (1)
  - Ocular pemphigoid [None]
